FAERS Safety Report 4375546-5 (Version None)
Quarter: 2004Q2

REPORT INFORMATION
  Report Type: 
  Country: None (occurrence: None)
  Receive Date: 20040610
  Receipt Date: 20040602
  Transmission Date: 20050107
  Serious: Yes (Death)
  Sender: FDA-Public Use
  Company Number: GB-JNJFOC-20040600686

PATIENT
  Age: 61 Year
  Sex: Female

DRUGS (3)
  1. REMICADE [Suspect]
     Indication: ARTHRALGIA
     Route: 042
  2. AZATHIOPRINE [Interacting]
     Indication: RHEUMATOID ARTHRITIS
     Route: 065
  3. PREDNISOLONE [Concomitant]

REACTIONS (5)
  - ALVEOLITIS FIBROSING [None]
  - CONDITION AGGRAVATED [None]
  - DRUG INTERACTION [None]
  - TACHYPNOEA [None]
  - THERAPEUTIC RESPONSE DECREASED [None]
